FAERS Safety Report 24090600 (Version 1)
Quarter: 2024Q3

REPORT INFORMATION
  Report Type: Spontaneous
  Country: US (occurrence: US)
  Receive Date: 20240715
  Receipt Date: 20240715
  Transmission Date: 20241016
  Serious: No
  Sender: ROCHE
  Company Number: US-ROCHE-10000026340

PATIENT
  Age: 65 Year
  Sex: Male

DRUGS (4)
  1. ALECTINIB [Suspect]
     Active Substance: ALECTINIB
     Indication: Lung adenocarcinoma
     Route: 065
  2. CRIZOTINIB [Concomitant]
     Active Substance: CRIZOTINIB
  3. BRIGATINIB [Concomitant]
     Active Substance: BRIGATINIB
  4. LORLATINIB [Concomitant]
     Active Substance: LORLATINIB

REACTIONS (1)
  - Drug resistance [Unknown]
